FAERS Safety Report 6913391-4 (Version None)
Quarter: 2010Q3

REPORT INFORMATION
  Report Type: 
  Country: None (occurrence: None)
  Receive Date: 20100803
  Receipt Date: 20100408
  Transmission Date: 20110219
  Serious: Yes (Life-Threatening, Hospitalization)
  Sender: FDA-Public Use
  Company Number: WAES  1004CAN00001

PATIENT
  Age: 39 Year
  Sex: Male

DRUGS (10)
  1. TAB RALTEGRAVIR POTASSIUM UNK [Suspect]
     Indication: HIV INFECTION
     Dosage: 600 MG BID PO
     Route: 048
     Dates: start: 20050418, end: 20060711
  2. TAB TENOFOVIR UNK [Suspect]
     Indication: HIV INFECTION
     Dosage: 300 MG DAILY PO
     Route: 048
     Dates: start: 20050418, end: 20080730
  3. LAMIVUDINE [Suspect]
     Indication: HIV INFECTION
     Dosage: 300 MG DAILY PO
     Route: 048
     Dates: start: 20050418, end: 20080730
  4. PLACEBO (UNSPECIFIED) UNK [Suspect]
     Indication: HIV INFECTION
     Dosage: PO
     Route: 048
  5. ANTIOXIDANTS (UNSPECIFIED) [Concomitant]
  6. CITALOPRAM HYDROBROMIDE [Concomitant]
  7. EFAVIRENZ [Concomitant]
  8. EMTRICITABINE + TENOFOVIR DISO [Concomitant]
  9. FLAXSEED [Concomitant]
  10. LACTASE [Concomitant]

REACTIONS (3)
  - COLORECTAL CANCER STAGE IV [None]
  - METASTASES TO LIVER [None]
  - METASTASES TO PERITONEUM [None]
